FAERS Safety Report 7428993-9 (Version None)
Quarter: 2011Q2

REPORT INFORMATION
  Report Type: 
  Country: None (occurrence: None)
  Receive Date: 20110421
  Receipt Date: 20110418
  Transmission Date: 20111010
  Serious: Yes (Hospitalization)
  Sender: FDA-Public Use
  Company Number: JP-B.I. PHARMACEUTICALS,INC./RIDGEFIELD-2011-BP-11152NB

PATIENT
  Age: 99 Year
  Sex: Female

DRUGS (7)
  1. MARZULENE-S [Concomitant]
     Route: 065
  2. PARIET [Concomitant]
     Route: 065
  3. UROLEAP [Concomitant]
     Route: 065
  4. DIART [Concomitant]
     Route: 065
  5. HOKUNALIN:TAPE [Concomitant]
     Route: 065
  6. PRAZAXA [Suspect]
     Indication: ATRIAL FIBRILLATION
     Dosage: 150 MG
     Route: 048
     Dates: end: 20110417
  7. THYRADIN [Concomitant]
     Route: 065

REACTIONS (3)
  - DYSPNOEA [None]
  - PNEUMONIA [None]
  - MOUTH HAEMORRHAGE [None]
